FAERS Safety Report 8831054 (Version 1)
Quarter: 2012Q4

REPORT INFORMATION
  Report Type: 
  Country: US (occurrence: US)
  Receive Date: 20121009
  Receipt Date: 20121009
  Transmission Date: 20130627
  Serious: Yes (Other)
  Sender: FDA-Public Use
  Company Number: US-PFIZER INC-2012244493

PATIENT
  Sex: Male

DRUGS (1)
  1. VIAGRA [Suspect]
     Indication: ERECTILE DYSFUNCTION
     Dosage: UNK

REACTIONS (5)
  - Testicular swelling [Unknown]
  - Erection increased [Unknown]
  - Drug effect delayed [Unknown]
  - Ejaculation disorder [Unknown]
  - Ejaculation failure [Unknown]
